FAERS Safety Report 12772907 (Version 1)
Quarter: 2016Q3

REPORT INFORMATION
  Report Type: Report from Study
  Country: US (occurrence: US)
  Receive Date: 20160922
  Receipt Date: 20160922
  Transmission Date: 20161109
  Serious: Yes (Death)
  Sender: FDA-Public Use
  Company Number: US-ABBVIE-16K-163-1733772-00

PATIENT
  Age: 70 Year
  Sex: Male

DRUGS (1)
  1. HUMIRA [Suspect]
     Active Substance: ADALIMUMAB
     Indication: CROHN^S DISEASE
     Route: 058
     Dates: start: 20141114, end: 20160914

REACTIONS (4)
  - Death [Fatal]
  - Cardiac disorder [Unknown]
  - Aneurysm [Unknown]
  - Renal failure [Unknown]

NARRATIVE: CASE EVENT DATE: 2016
